FAERS Safety Report 6566480-0 (Version None)
Quarter: 2010Q1

REPORT INFORMATION
  Report Type: 
  Country: None (occurrence: None)
  Receive Date: 20100127
  Receipt Date: 20100113
  Transmission Date: 20100710
  Serious: Yes (Hospitalization, Other)
  Sender: FDA-Public Use
  Company Number: 003594

PATIENT
  Sex: Male
  Weight: 70 kg

DRUGS (3)
  1. CIMZIA [Suspect]
     Indication: RHEUMATOID ARTHRITIS
     Dosage: (SUBCUTANEOUS)
     Route: 058
     Dates: start: 20091116, end: 20091207
  2. DECORTIN [Concomitant]
  3. ARAVA [Concomitant]

REACTIONS (4)
  - ABSCESS [None]
  - CELLULITIS [None]
  - FAT NECROSIS [None]
  - FOLLICULITIS [None]
